FAERS Safety Report 7503871-5 (Version None)
Quarter: 2011Q2

REPORT INFORMATION
  Report Type: 
  Country: None (occurrence: None)
  Receive Date: 20110525
  Receipt Date: 20110516
  Transmission Date: 20111010
  Serious: Yes (Hospitalization)
  Sender: FDA-Public Use
  Company Number: DE-BRACCO-000859

PATIENT
  Sex: Male

DRUGS (2)
  1. PROHANCE [Suspect]
     Indication: DIAGNOSTIC PROCEDURE
     Route: 042
     Dates: start: 20110404, end: 20110404
  2. PROHANCE [Suspect]
     Indication: EMBOLISM
     Route: 042
     Dates: start: 20110404, end: 20110404

REACTIONS (1)
  - THROMBOSIS IN DEVICE [None]
